FAERS Safety Report 6204372-7 (Version None)
Quarter: 2009Q2

REPORT INFORMATION
  Report Type: 
  Country: None (occurrence: None)
  Receive Date: 20090522
  Receipt Date: 20090518
  Transmission Date: 20091009
  Serious: Yes (Other)
  Sender: FDA-Public Use
  Company Number: 09-223

PATIENT
  Age: 65 Year
  Sex: Female

DRUGS (8)
  1. ALEVE [Suspect]
     Indication: ARTHRALGIA
     Dosage: 220 MG, DAILY, ORAL
     Route: 048
     Dates: start: 20090401
  2. JOINT FUEL [Concomitant]
  3. FLUID MOTION [Concomitant]
  4. VITAMIN D [Concomitant]
  5. MAX EPA [Concomitant]
  6. GINSANA [Concomitant]
  7. BONE UP CALCIUM [Concomitant]
  8. CINIMIN [Concomitant]

REACTIONS (4)
  - BALANCE DISORDER [None]
  - BLOOD PRESSURE FLUCTUATION [None]
  - INAPPROPRIATE SCHEDULE OF DRUG ADMINISTRATION [None]
  - TENSION HEADACHE [None]
